FAERS Safety Report 20911921 (Version 2)
Quarter: 2022Q4

REPORT INFORMATION
  Report Type: Spontaneous
  Country: US (occurrence: US)
  Receive Date: 20220603
  Receipt Date: 20221021
  Transmission Date: 20230113
  Serious: No
  Sender: FDA-Public Use
  Company Number: US-KYOWAKIRIN-2022BKK008140

PATIENT

DRUGS (1)
  1. SANCUSO [Suspect]
     Active Substance: GRANISETRON
     Indication: Nausea
     Dosage: UNK, 1X/WEEK (1 PATCH EVERY WEEK.)
     Route: 065
     Dates: start: 202201

REACTIONS (1)
  - Off label use [Unknown]
